FAERS Safety Report 18479161 (Version 1)
Quarter: 2020Q4

REPORT INFORMATION
  Report Type: Spontaneous
  Country: FR (occurrence: FR)
  Receive Date: 20201109
  Receipt Date: 20201109
  Transmission Date: 20210114
  Serious: Yes (Other)
  Sender: FDA-Public Use
  Company Number: FR-AUROBINDO-AUR-APL-2020-055002

PATIENT
  Sex: Male

DRUGS (13)
  1. IDELALISIB [Suspect]
     Active Substance: IDELALISIB
     Indication: B-CELL LYMPHOMA REFRACTORY
     Dosage: 150 MILLIGRAM, TWO TIMES A DAY
     Route: 048
     Dates: start: 20190304
  2. IDELALISIB [Suspect]
     Active Substance: IDELALISIB
     Dosage: UNK UNK, ONCE A DAY
     Route: 048
     Dates: start: 20190629, end: 20190704
  3. IDELALISIB [Suspect]
     Active Substance: IDELALISIB
     Dosage: UNK UNK, TWO TIMES A DAY
     Route: 048
     Dates: start: 20190626, end: 20200726
  4. IDELALISIB [Suspect]
     Active Substance: IDELALISIB
     Dosage: 150 MILLIGRAM, TWO TIMES A DAY
     Route: 048
     Dates: start: 20190727, end: 20190820
  5. DESLORATADINE. [Concomitant]
     Active Substance: DESLORATADINE
     Indication: PRODUCT USED FOR UNKNOWN INDICATION
     Dosage: UNK
     Route: 065
     Dates: start: 20190517
  6. AMOXICILLIN+CLAVULANIC ACID [Suspect]
     Active Substance: AMOXICILLIN\CLAVULANIC ACID
     Indication: PRODUCT USED FOR UNKNOWN INDICATION
     Dosage: UNK
     Route: 065
  7. BACTRIM [Concomitant]
     Active Substance: SULFAMETHOXAZOLE\TRIMETHOPRIM
     Indication: PRODUCT USED FOR UNKNOWN INDICATION
     Dosage: UNK
     Route: 065
     Dates: start: 20190304
  8. LEVOTHYROX [Concomitant]
     Active Substance: LEVOTHYROXINE
     Indication: PRODUCT USED FOR UNKNOWN INDICATION
     Dosage: UNK
     Route: 065
     Dates: start: 20000615
  9. IDELALISIB [Suspect]
     Active Substance: IDELALISIB
     Dosage: 100 MILLIGRAM, ONCE A DAY
     Route: 048
     Dates: start: 20190705, end: 20190726
  10. IDELALISIB [Suspect]
     Active Substance: IDELALISIB
     Dosage: UNK UNK, TWO TIMES A DAY
     Route: 048
     Dates: start: 20190821, end: 20190830
  11. WELLVONE [Suspect]
     Active Substance: ATOVAQUONE
     Indication: PRODUCT USED FOR UNKNOWN INDICATION
     Dosage: UNK
     Route: 065
  12. LOCOID [Concomitant]
     Active Substance: HYDROCORTISONE BUTYRATE
     Indication: PRODUCT USED FOR UNKNOWN INDICATION
     Dosage: UNK
     Route: 065
     Dates: start: 20190820
  13. LEVOTHYROXINE. [Concomitant]
     Active Substance: LEVOTHYROXINE
     Indication: PRODUCT USED FOR UNKNOWN INDICATION
     Dosage: UNK
     Route: 065
     Dates: start: 20000615

REACTIONS (17)
  - Toxic skin eruption [Recovered/Resolved]
  - Dyspnoea [Recovered/Resolved]
  - Pyrexia [Recovered/Resolved]
  - Weight decreased [Recovered/Resolved]
  - Productive cough [Recovered/Resolved]
  - Pneumonia [Recovered/Resolved]
  - Disease recurrence [Unknown]
  - Nausea [Unknown]
  - Dysgeusia [Recovered/Resolved]
  - Dyspepsia [Recovered/Resolved]
  - Rash papular [Unknown]
  - Decreased appetite [Unknown]
  - Constipation [Recovered/Resolved]
  - Melanocytic naevus [Unknown]
  - Petechiae [Recovered/Resolved with Sequelae]
  - Mucosal inflammation [Recovered/Resolved]
  - Fatigue [Recovered/Resolved]

NARRATIVE: CASE EVENT DATE: 20190404
